FAERS Safety Report 12842903 (Version 2)
Quarter: 2016Q4

REPORT INFORMATION
  Report Type: Spontaneous
  Country: FI (occurrence: FI)
  Receive Date: 20161013
  Receipt Date: 20161021
  Transmission Date: 20170207
  Serious: Yes (Hospitalization)
  Sender: FDA-Public Use
  Company Number: FI-ROCHE-1840760

PATIENT
  Age: 17 Year
  Sex: Female

DRUGS (13)
  1. PREDNISOLON [Concomitant]
     Active Substance: PREDNISOLONE
     Route: 065
  2. GESTINYL [Concomitant]
     Dosage: 20/75 MICROGRAM
     Route: 048
  3. BURANA [Concomitant]
     Active Substance: IBUPROFEN
     Dosage: AS NEEDED, NOT MORE THAN 1800 MG PER DAY
     Route: 048
  4. ROACTEMRA [Suspect]
     Active Substance: TOCILIZUMAB
     Indication: JUVENILE IDIOPATHIC ARTHRITIS
     Dosage: INFUSION CONCENTRATE
     Route: 042
     Dates: start: 20160513, end: 20160927
  5. XYZAL [Concomitant]
     Active Substance: LEVOCETIRIZINE DIHYDROCHLORIDE
     Route: 048
  6. PREDNISOLON [Concomitant]
     Active Substance: PREDNISOLONE
     Route: 065
  7. LECROLYN [Concomitant]
     Dosage: 40MG/ML
     Route: 047
  8. PANADOL FORTE [Concomitant]
     Active Substance: ACETAMINOPHEN\CAFFEINE
     Indication: PAIN
     Dosage: AS NEEDED, NOT MORE THAN 3 G PER DAY
     Route: 048
  9. TREXAN (FINLAND) [Concomitant]
     Indication: JUVENILE IDIOPATHIC ARTHRITIS
     Route: 048
  10. OXIKLORIN [Concomitant]
     Active Substance: HYDROXYCHLOROQUINE SULFATE
     Route: 048
  11. ACID FOLIC [Concomitant]
     Dosage: 4-12 HOURS AFTER TREXAN
     Route: 048
  12. KALCIPOS-D [Concomitant]
     Active Substance: CALCIUM CARBONATE\CHOLECALCIFEROL
     Dosage: 500 MG /400 IU
     Route: 048
  13. SOMAC [Concomitant]
     Active Substance: PANTOPRAZOLE SODIUM
     Route: 048

REACTIONS (1)
  - Panniculitis [Recovering/Resolving]

NARRATIVE: CASE EVENT DATE: 20161004
